FAERS Safety Report 8969710 (Version 1)
Quarter: 2012Q4

REPORT INFORMATION
  Report Type: 
  Country: US (occurrence: US)
  Receive Date: 20121218
  Receipt Date: 20121218
  Transmission Date: 20130627
  Serious: No
  Sender: FDA-Public Use
  Company Number: US-BRISTOL-MYERS SQUIBB COMPANY-16574816

PATIENT
  Age: 48 Year
  Sex: Male

DRUGS (3)
  1. ABILIFY [Suspect]
     Indication: OBSESSIVE-COMPULSIVE DISORDER
     Dates: start: 2012
  2. ABILIFY [Suspect]
     Indication: DEPRESSION
     Dates: start: 2012
  3. ABILIFY [Suspect]
     Indication: SCHIZOAFFECTIVE DISORDER
     Dates: start: 2012

REACTIONS (4)
  - Dyskinesia [Unknown]
  - Bone pain [Unknown]
  - Mental impairment [Unknown]
  - Thinking abnormal [Unknown]
